FAERS Safety Report 11267964 (Version 1)
Quarter: 2015Q3

REPORT INFORMATION
  Report Type: Spontaneous
  Country: US (occurrence: US)
  Receive Date: 20150713
  Receipt Date: 20150713
  Transmission Date: 20151125
  Serious: No
  Sender: FDA-Public Use
  Company Number: US-ASTRAZENECA-2015SE53423

PATIENT
  Age: 23523 Day
  Sex: Female
  Weight: 77.1 kg

DRUGS (12)
  1. SYMBICORT [Suspect]
     Active Substance: BUDESONIDE\FORMOTEROL FUMARATE DIHYDRATE
     Indication: CHRONIC OBSTRUCTIVE PULMONARY DISEASE
     Dosage: 160-4.5 TWO PUFFS BID
     Route: 055
     Dates: start: 20150521
  2. SIMVASTATIN. [Concomitant]
     Active Substance: SIMVASTATIN
     Dosage: 20MG DAILY
  3. METFORMIN [Concomitant]
     Active Substance: METFORMIN HYDROCHLORIDE
     Indication: DIABETES MELLITUS
     Dosage: 100MG BID
  4. VALSARTAN. [Concomitant]
     Active Substance: VALSARTAN
  5. SYMBICORT [Suspect]
     Active Substance: BUDESONIDE\FORMOTEROL FUMARATE DIHYDRATE
     Indication: CHRONIC OBSTRUCTIVE PULMONARY DISEASE
     Dosage: 80/4.5,UNKNOWN
     Route: 055
  6. GLYMEPIRIDE [Concomitant]
     Dosage: 4MG BID
  7. PANTOPRAZOLE [Concomitant]
     Active Substance: PANTOPRAZOLE SODIUM
     Dosage: 40MG ONCE A DAY
  8. DULERA [Concomitant]
     Active Substance: FORMOTEROL FUMARATE DIHYDRATE\MOMETASONE FUROATE
  9. METROPROLOL [Concomitant]
     Active Substance: METOPROLOL
     Dosage: 50MG ONE AND A HALF TABLET BID
  10. NOVALOG [Concomitant]
     Indication: DIABETES MELLITUS
     Dosage: 34 IN AM AND 24 IN AFTERNOON
  11. SPIRIVA [Concomitant]
     Active Substance: TIOTROPIUM BROMIDE MONOHYDRATE
  12. CELEBREX [Concomitant]
     Active Substance: CELECOXIB

REACTIONS (3)
  - Throat irritation [Recovered/Resolved]
  - Dyspnoea [Recovered/Resolved]
  - Choking [Recovered/Resolved]

NARRATIVE: CASE EVENT DATE: 20150521
